FAERS Safety Report 13817107 (Version 2)
Quarter: 2017Q3

REPORT INFORMATION
  Report Type: Spontaneous
  Country: US (occurrence: US)
  Receive Date: 20170731
  Receipt Date: 20170826
  Transmission Date: 20171127
  Serious: Yes (Other)
  Sender: FDA-Public Use
  Company Number: PHEH2017US022229

PATIENT
  Age: 62 Year
  Sex: Female
  Weight: 78.5 kg

DRUGS (9)
  1. ONDANSETRAN [Concomitant]
     Active Substance: ONDANSETRON HYDROCHLORIDE
     Indication: PRODUCT USED FOR UNKNOWN INDICATION
     Dosage: 1 DF, Q8H (PRN)
     Route: 065
  2. VITAMIN D3 [Concomitant]
     Active Substance: CHOLECALCIFEROL
     Indication: PRODUCT USED FOR UNKNOWN INDICATION
     Dosage: UNK UNK, QD
     Route: 048
  3. FLUOCINOLONE [Concomitant]
     Active Substance: FLUOCINOLONE
     Indication: PRODUCT USED FOR UNKNOWN INDICATION
     Dosage: UNK UNK, QD
     Route: 061
  4. IBRANCE [Suspect]
     Active Substance: PALBOCICLIB
     Indication: METASTASES TO BONE
     Dosage: 125 MG, QD (3 WEEKS ON AND ONE WEEK OFF)
     Route: 065
     Dates: start: 20170308
  5. CALCIUM [Concomitant]
     Active Substance: CALCIUM
     Indication: PRODUCT USED FOR UNKNOWN INDICATION
     Route: 065
  6. FEMARA [Suspect]
     Active Substance: LETROZOLE
     Indication: METASTASES TO BONE
     Dosage: 2.5 MG, QD
     Route: 065
     Dates: start: 20170308
  7. BETAMETHASONE VALERATE. [Concomitant]
     Active Substance: BETAMETHASONE VALERATE
     Indication: PRODUCT USED FOR UNKNOWN INDICATION
     Dosage: UNK, PRN
     Route: 065
  8. FERROUS SULFATE. [Concomitant]
     Active Substance: FERROUS SULFATE
     Indication: PRODUCT USED FOR UNKNOWN INDICATION
     Dosage: 1 DF, QD
     Route: 065
  9. VITAMIIN C [Concomitant]
     Active Substance: ASCORBIC ACID
     Indication: PRODUCT USED FOR UNKNOWN INDICATION
     Dosage: 500 MG, QD
     Route: 048

REACTIONS (11)
  - Leukopenia [Unknown]
  - Cholelithiasis [Unknown]
  - Fatigue [Unknown]
  - Hypoacusis [Unknown]
  - Blood pressure increased [Unknown]
  - Weight increased [Unknown]
  - Excoriation [Unknown]
  - Alopecia [Unknown]
  - Hunger [Unknown]
  - Carbohydrate antigen 27.29 increased [Unknown]
  - Skin hyperpigmentation [Unknown]

NARRATIVE: CASE EVENT DATE: 201703
